FAERS Safety Report 13669181 (Version 7)
Quarter: 2020Q2

REPORT INFORMATION
  Report Type: Spontaneous
  Country: US (occurrence: US)
  Receive Date: 20170620
  Receipt Date: 20200526
  Transmission Date: 20200713
  Serious: No
  Sender: FDA-Public Use
  Company Number: US-PFIZER INC-2017264563

PATIENT
  Age: 49 Year
  Sex: Female

DRUGS (7)
  1. LYRICA [Suspect]
     Active Substance: PREGABALIN
     Dosage: UNK, 3X/DAY
     Route: 048
  2. PROAIR HFA [Concomitant]
     Active Substance: ALBUTEROL SULFATE
     Dosage: UNK, AS NEEDED  (EVERY 4 HOURS)
  3. MAGNESIUM OXIDE. [Concomitant]
     Active Substance: MAGNESIUM OXIDE
     Dosage: 12 DF, DAILY (400 MG 12 A DAY)
  4. MARIJUANA [Concomitant]
     Active Substance: CANNABIS SATIVA SUBSP. INDICA TOP
     Indication: PAIN
     Dosage: UNK, (IV3000)
     Route: 042
  5. LYRICA [Suspect]
     Active Substance: PREGABALIN
     Indication: IMPAIRED GASTRIC EMPTYING
     Dosage: 50 MG, 2X/DAY
     Dates: start: 20170512
  6. DIPHENOXYLATE/ATROPINE [Concomitant]
     Active Substance: ATROPINE\DIPHENOXYLATE
     Dosage: UNK, AS NEEDED [2.5 MG]
  7. GLIPIZIDE. [Concomitant]
     Active Substance: GLIPIZIDE
     Dosage: 10 MG, DAILY

REACTIONS (6)
  - Product use in unapproved indication [Unknown]
  - Malaise [Unknown]
  - Nasopharyngitis [Unknown]
  - Off label use [Unknown]
  - Pollakiuria [Recovering/Resolving]
  - Drug effective for unapproved indication [Unknown]

NARRATIVE: CASE EVENT DATE: 2017
